FAERS Safety Report 24567703 (Version 4)
Quarter: 2024Q4

REPORT INFORMATION
  Report Type: Spontaneous
  Country: NL (occurrence: NL)
  Receive Date: 20241031
  Receipt Date: 20241209
  Transmission Date: 20250115
  Serious: Yes (Other)
  Sender: ORGANON
  Company Number: NL-ORGANON-O2410NLD002607

PATIENT
  Age: 29 Year
  Sex: Female

DRUGS (1)
  1. ETONOGESTREL [Suspect]
     Active Substance: ETONOGESTREL
     Indication: Contraception
     Dosage: 1 IMPLANT (68 MG)
     Route: 059
     Dates: start: 20230629

REACTIONS (5)
  - Dermoid cyst [Not Recovered/Not Resolved]
  - Condition aggravated [Not Recovered/Not Resolved]
  - Menstruation delayed [Recovered/Resolved]
  - Maternal exposure during breast feeding [Unknown]
  - Menstruation irregular [Unknown]
